FAERS Safety Report 20671724 (Version 1)
Quarter: 2022Q2

REPORT INFORMATION
  Report Type: Report from Study
  Country: PT (occurrence: PT)
  Receive Date: 20220405
  Receipt Date: 20220405
  Transmission Date: 20220720
  Serious: Yes (Other)
  Sender: FDA-Public Use
  Company Number: PT-ABBVIE-22K-130-4344563-00

PATIENT
  Age: 50 Year
  Sex: Female

DRUGS (3)
  1. HUMIRA [Suspect]
     Active Substance: ADALIMUMAB
     Indication: Ankylosing spondylitis
     Route: 058
     Dates: start: 20190107, end: 202203
  2. METHOTREXATE [Concomitant]
     Active Substance: METHOTREXATE
     Indication: Ankylosing spondylitis
     Route: 058
  3. ESOMEPRAZOLE [Concomitant]
     Active Substance: ESOMEPRAZOLE
     Indication: Prophylaxis
     Route: 048

REACTIONS (1)
  - Thyroid neoplasm [Not Recovered/Not Resolved]

NARRATIVE: CASE EVENT DATE: 20220101
